FAERS Safety Report 6184002-3 (Version None)
Quarter: 2009Q2

REPORT INFORMATION
  Report Type: 
  Country: None (occurrence: None)
  Receive Date: 20090506
  Receipt Date: 20090506
  Transmission Date: 20091009
  Serious: No
  Sender: FDA-Public Use
  Company Number: None

PATIENT
  Age: 58 Year
  Sex: Male
  Weight: 100.52 kg

DRUGS (4)
  1. PIOGLITAZONE [Suspect]
     Indication: DIABETES MELLITUS
     Dosage: 15 MG EVERY DAY PO
     Route: 048
     Dates: start: 20090425, end: 20090429
  2. ASPIRIN [Suspect]
     Indication: CARDIOVASCULAR DISORDER
     Dosage: 325 MG EVERY DAY PO
     Route: 048
     Dates: start: 20090417
  3. ASPIRIN [Suspect]
     Indication: DIABETES MELLITUS
     Dosage: 325 MG EVERY DAY PO
     Route: 048
     Dates: start: 20090417
  4. ASPIRIN [Suspect]
     Indication: SURGERY
     Dosage: 325 MG EVERY DAY PO
     Route: 048
     Dates: start: 20090417

REACTIONS (3)
  - CHROMATURIA [None]
  - IMPAIRED DRIVING ABILITY [None]
  - VISION BLURRED [None]
